FAERS Safety Report 21474932 (Version 5)
Quarter: 2022Q4

REPORT INFORMATION
  Report Type: Report from Study
  Country: TW (occurrence: TW)
  Receive Date: 20221019
  Receipt Date: 20221122
  Transmission Date: 20230113
  Serious: Yes (Hospitalization)
  Sender: FDA-Public Use
  Company Number: TW-ABBVIE-4152362

PATIENT
  Age: 61 Year

DRUGS (3)
  1. UPADACITINIB [Suspect]
     Active Substance: UPADACITINIB
     Indication: Rheumatoid arthritis
     Dosage: STRENGTH- 40 MG
     Route: 048
     Dates: start: 20220105, end: 2022
  2. UPADACITINIB [Suspect]
     Active Substance: UPADACITINIB
     Indication: Rheumatoid arthritis
     Dosage: STRENGTH- 40 MG
     Route: 048
     Dates: start: 20221101
  3. BROMAZEPAM [Concomitant]
     Active Substance: BROMAZEPAM
     Indication: Sepsis
     Dosage: (1.5MG)
     Route: 048
     Dates: start: 20221014, end: 20221016

REACTIONS (8)
  - Sepsis [Recovered/Resolved]
  - Mycobacterium avium complex infection [Not Recovered/Not Resolved]
  - Tooth loss [Recovered/Resolved]
  - Enteritis infectious [Recovered/Resolved]
  - Periodontitis [Recovering/Resolving]
  - Hypotension [Recovered/Resolved]
  - Acute kidney injury [Recovered/Resolved]
  - Thrombocytopenia [Recovered/Resolved]

NARRATIVE: CASE EVENT DATE: 20220802
